FAERS Safety Report 24794967 (Version 1)
Quarter: 2024Q4

REPORT INFORMATION
  Report Type: Spontaneous
  Country: US (occurrence: None)
  Receive Date: 20241231
  Receipt Date: 20241231
  Transmission Date: 20250115
  Serious: Yes (Hospitalization)
  Sender: Public
  Company Number: None

PATIENT
  Age: 10 Year
  Sex: Male
  Weight: 33.75 kg

DRUGS (1)
  1. QUILLIVANT XR [Suspect]
     Active Substance: METHYLPHENIDATE HYDROCHLORIDE
     Indication: Attention deficit hyperactivity disorder
     Dosage: 6 ML ORAL ?
     Route: 048
     Dates: start: 20160401, end: 20160505

REACTIONS (10)
  - Psychotic disorder [None]
  - Blindness [None]
  - Conversion disorder [None]
  - Dyspnoea [None]
  - Freezing phenomenon [None]
  - Injury [None]
  - Partner stress [None]
  - Educational problem [None]
  - Sexual dysfunction [None]
  - Drug use disorder [None]

NARRATIVE: CASE EVENT DATE: 20160505
